FAERS Safety Report 10447385 (Version 2)
Quarter: 2014Q3

REPORT INFORMATION
  Report Type: Spontaneous
  Country: US (occurrence: US)
  Receive Date: 20140911
  Receipt Date: 20140911
  Transmission Date: 20150326
  Serious: No
  Sender: FDA-Public Use
  Company Number: US-BEH-2011030157

PATIENT
  Age: 58 Year
  Sex: Male
  Weight: 81 kg

DRUGS (32)
  1. SPIRIVA [Concomitant]
     Active Substance: TIOTROPIUM BROMIDE MONOHYDRATE
  2. ZYRTEC [Concomitant]
     Active Substance: CETIRIZINE HYDROCHLORIDE
  3. FISH OIL [Concomitant]
     Active Substance: FISH OIL
  4. MULTIVITAMIN [Concomitant]
     Active Substance: VITAMINS
  5. ALL OTHER THERAPEUTIC PRODUCTS [Concomitant]
     Active Substance: UNSPECIFIED INGREDIENT
  6. VIGAMOX [Concomitant]
     Active Substance: MOXIFLOXACIN HYDROCHLORIDE
  7. ZOFRAN [Concomitant]
     Active Substance: ONDANSETRON HYDROCHLORIDE
  8. ZYRTEC [Concomitant]
     Active Substance: CETIRIZINE HYDROCHLORIDE
  9. ZEMAIRA [Suspect]
     Active Substance: .ALPHA.1-PROTEINASE INHIBITOR HUMAN
     Dosage: 7.3 ML/MIN
     Route: 042
  10. ALBUTEROL. [Concomitant]
     Active Substance: ALBUTEROL
  11. PREDNISOLONE. [Concomitant]
     Active Substance: PREDNISOLONE
  12. LEVAQUIN [Concomitant]
     Active Substance: LEVOFLOXACIN
  13. FLOMAX [Concomitant]
     Active Substance: TAMSULOSIN HYDROCHLORIDE
  14. PREDNISONE. [Concomitant]
     Active Substance: PREDNISONE
  15. ADVAIR HFA [Concomitant]
     Active Substance: FLUTICASONE PROPIONATE\SALMETEROL XINAFOATE
  16. COD LIVER OIL [Concomitant]
     Active Substance: COD LIVER OIL
  17. ZEMAIRA [Suspect]
     Active Substance: .ALPHA.1-PROTEINASE INHIBITOR HUMAN
     Dosage: 7.3 ML/MIN
     Route: 042
  18. ACETAMINOPHEN. [Concomitant]
     Active Substance: ACETAMINOPHEN
  19. MUCINEX DM [Concomitant]
     Active Substance: DEXTROMETHORPHAN HYDROBROMIDE\GUAIFENESIN
  20. METROGEL [Concomitant]
     Active Substance: METRONIDAZOLE
  21. VENTOLIN HFA [Concomitant]
     Active Substance: ALBUTEROL SULFATE
  22. SODIUM CHLORIDE. [Concomitant]
     Active Substance: SODIUM CHLORIDE
  23. HYDROCORTISONE. [Concomitant]
     Active Substance: HYDROCORTISONE
  24. LMX [Concomitant]
     Active Substance: LIDOCAINE
  25. PROTONIX [Concomitant]
     Active Substance: PANTOPRAZOLE SODIUM
  26. CALCIUM [Concomitant]
     Active Substance: CALCIUM
  27. ZEMAIRA [Suspect]
     Active Substance: .ALPHA.1-PROTEINASE INHIBITOR HUMAN
     Indication: ALPHA-1 ANTI-TRYPSIN DEFICIENCY
     Dosage: 125 MG/KG (+/- 10%) 0.08 ML/KG/MIN.
     Route: 042
     Dates: start: 20040915
  28. ZEMAIRA [Suspect]
     Active Substance: .ALPHA.1-PROTEINASE INHIBITOR HUMAN
     Dosage: 6.4 ML/MIN.
     Route: 042
     Dates: start: 20131016, end: 20131016
  29. METOPROLOL [Concomitant]
     Active Substance: METOPROLOL
  30. UNIPHYL [Concomitant]
     Active Substance: THEOPHYLLINE ANHYDROUS
  31. DIPHENHYDRAMINE [Concomitant]
     Active Substance: DIPHENHYDRAMINE
  32. EPIPEN [Concomitant]
     Active Substance: EPINEPHRINE

REACTIONS (6)
  - Injection site erythema [Unknown]
  - Headache [Unknown]
  - Injection site rash [Unknown]
  - Pruritus [Unknown]
  - Fatigue [Unknown]
  - Injection site pain [Unknown]

NARRATIVE: CASE EVENT DATE: 201010
